FAERS Safety Report 8438904-5 (Version None)
Quarter: 2012Q2

REPORT INFORMATION
  Report Type: 
  Country: None (occurrence: None)
  Receive Date: 20120608
  Receipt Date: 20120524
  Transmission Date: 20120825
  Serious: Yes (Other)
  Sender: FDA-Public Use
  Company Number: FK201201460

PATIENT
  Age: 65 Year

DRUGS (1)
  1. SODIUM CHLORIDE INJ [Suspect]
     Indication: SPIDER VEIN
     Dosage: INTRAVENOUS
     Route: 042
     Dates: start: 20120321, end: 20120321

REACTIONS (5)
  - INJECTION SITE DISCOLOURATION [None]
  - INJECTION SITE ERYTHEMA [None]
  - IMPAIRED HEALING [None]
  - INJECTION SITE VESICLES [None]
  - INJECTION SITE REACTION [None]
